FAERS Safety Report 19841026 (Version 1)
Quarter: 2021Q3

REPORT INFORMATION
  Report Type: Other
  Country: US (occurrence: US)
  Receive Date: 20210916
  Receipt Date: 20210916
  Transmission Date: 20211014
  Serious: No
  Sender: FDA-Public Use
  Company Number: US-LEADIANT BIOSCIENCES INC-2021STPI000012

PATIENT
  Age: 43 Year
  Sex: Male

DRUGS (4)
  1. GLEOSTINE [Concomitant]
     Active Substance: LOMUSTINE
  2. VITAMIN C [Concomitant]
     Active Substance: ASCORBIC ACID
  3. SENNA [Concomitant]
     Active Substance: SENNA LEAF\SENNOSIDES\SENNOSIDES A AND B
  4. MATULANE [Suspect]
     Active Substance: PROCARBAZINE HYDROCHLORIDE
     Indication: BRAIN CANCER METASTATIC
     Dosage: 50 MILLIGRAM, QD 2 CAPSULES DAILY
     Route: 048
     Dates: start: 20201002, end: 20201229

REACTIONS (1)
  - Neutropenia [Not Recovered/Not Resolved]

NARRATIVE: CASE EVENT DATE: 20201229
